FAERS Safety Report 17395061 (Version 2)
Quarter: 2020Q3

REPORT INFORMATION
  Report Type: Spontaneous
  Country: CA (occurrence: CA)
  Receive Date: 20200210
  Receipt Date: 20200820
  Transmission Date: 20201102
  Serious: Yes (Congenital Anomaly, Other)
  Sender: FDA-Public Use
  Company Number: CA-AUROBINDO-AUR-APL-2019-088571

PATIENT
  Age: 10 Year
  Sex: Female
  Weight: 11 kg

DRUGS (20)
  1. CALCIUM CARBONATE. [Concomitant]
     Active Substance: CALCIUM CARBONATE
     Indication: PRODUCT USED FOR UNKNOWN INDICATION
     Dosage: 125 MILLIGRAM, ONCE A DAY
     Route: 065
  2. TOPIRAMATE. [Suspect]
     Active Substance: TOPIRAMATE
     Indication: SEIZURE
     Dosage: 25 MG AM, 12.5 MG PM, 25 MG NOCTE
     Route: 065
  3. TOPIRAMATE. [Interacting]
     Active Substance: TOPIRAMATE
     Dosage: 25 MILLIGRAM
     Route: 065
  4. CARNITINE [Concomitant]
     Active Substance: CARNITINE
     Indication: PRODUCT USED FOR UNKNOWN INDICATION
     Dosage: 50 MILLIGRAM, TWO TIMES A DAY
     Route: 065
  5. LEVOCARNITINE HYDROCHLORIDE [Concomitant]
     Active Substance: LEVOCARNITINE HYDROCHLORIDE
     Indication: PRODUCT USED FOR UNKNOWN INDICATION
     Dosage: 50 MILLIGRAM, TWO TIMES A DAY
     Route: 065
  6. VALPROIC ACID. [Interacting]
     Active Substance: VALPROIC ACID
     Dosage: 125 MILLIGRAM, ONCE A DAY
     Route: 065
  7. VALPROIC ACID. [Interacting]
     Active Substance: VALPROIC ACID
     Dosage: 312.5 MILLIGRAM, ONCE A DAY
     Route: 065
  8. PHOSPHORUS [Concomitant]
     Active Substance: PHOSPHORUS
     Indication: PRODUCT USED FOR UNKNOWN INDICATION
     Dosage: UNK
     Route: 065
  9. TOPIRAMATE. [Interacting]
     Active Substance: TOPIRAMATE
     Dosage: 12.5 MILLIGRAM, ONCE A DAY
     Route: 065
  10. TOPIRAMATE. [Interacting]
     Active Substance: TOPIRAMATE
     Dosage: UNK, 3 TIMES A DAY
     Route: 065
  11. VALPROIC ACID. [Interacting]
     Active Substance: VALPROIC ACID
     Indication: SEIZURE
     Dosage: 125 MG AM, 62.5 MG PM, 125 MG NOCTE
     Route: 065
  12. ERGOCALCIFEROL. [Concomitant]
     Active Substance: ERGOCALCIFEROL
     Indication: PRODUCT USED FOR UNKNOWN INDICATION
     Dosage: UNK
     Route: 065
  13. POTASSIUM CITRATE. [Concomitant]
     Active Substance: POTASSIUM CITRATE
     Indication: PRODUCT USED FOR UNKNOWN INDICATION
     Dosage: UNK
     Route: 065
  14. VALPROIC ACID. [Interacting]
     Active Substance: VALPROIC ACID
     Dosage: 62.5 MILLIGRAM
     Route: 065
  15. TOPIRAMATE. [Interacting]
     Active Substance: TOPIRAMATE
     Dosage: 62.5 MILLIGRAM, ONCE A DAY
     Route: 065
  16. L?CARNITINE [Concomitant]
     Active Substance: LEVOCARNITINE
     Indication: PRODUCT USED FOR UNKNOWN INDICATION
     Dosage: UNK
     Route: 065
  17. TOPIRAMATE. [Interacting]
     Active Substance: TOPIRAMATE
     Dosage: 25 MILLIGRAM, ONCE A DAY
     Route: 065
  18. VALPROIC ACID. [Interacting]
     Active Substance: VALPROIC ACID
     Dosage: 62.5 MILLIGRAM, ONCE A DAY
     Route: 065
  19. VALPROIC ACID. [Interacting]
     Active Substance: VALPROIC ACID
     Dosage: UNK, 3 TIMES A DAY
     Route: 065
  20. LANSOPRAZOLE. [Concomitant]
     Active Substance: LANSOPRAZOLE
     Indication: PRODUCT USED FOR UNKNOWN INDICATION
     Dosage: 15 MILLIGRAM, TWO TIMES A DAY
     Route: 065

REACTIONS (19)
  - Blood alkaline phosphatase increased [Recovered/Resolved]
  - Blood pressure decreased [Unknown]
  - Drug interaction [Recovered/Resolved]
  - Hyperphosphataemia [Recovered/Resolved]
  - Hypophosphataemic osteomalacia [Recovered/Resolved]
  - Hypocitraturia [Recovering/Resolving]
  - Nephrocalcinosis [Recovered/Resolved]
  - Metabolic acidosis [Recovered/Resolved]
  - Femur fracture [Recovered/Resolved]
  - Renal tubular acidosis [Recovered/Resolved]
  - Rickets [Recovering/Resolving]
  - Urine analysis abnormal [Unknown]
  - Glycosuria [Recovered/Resolved]
  - Proteinuria [Recovered/Resolved]
  - Blood alkaline phosphatase abnormal [Unknown]
  - Osteopenia [Recovering/Resolving]
  - Fanconi syndrome [Recovered/Resolved]
  - Urine calcium/creatinine ratio increased [Recovered/Resolved]
  - Road traffic accident [Recovering/Resolving]
